FAERS Safety Report 5455094-1 (Version None)
Quarter: 2007Q3

REPORT INFORMATION
  Report Type: 
  Country: None (occurrence: None)
  Receive Date: 20070913
  Receipt Date: 20070903
  Transmission Date: 20080115
  Serious: No
  Sender: FDA-Public Use
  Company Number: 13592100

PATIENT
  Sex: Female

DRUGS (1)
  1. NALTREXONE HYDROCHLORIDE [Suspect]

REACTIONS (3)
  - ABORTION INDUCED [None]
  - DRUG EXPOSURE DURING PREGNANCY [None]
  - PREGNANCY [None]
